FAERS Safety Report 9132624 (Version 1)
Quarter: 2013Q1

REPORT INFORMATION
  Report Type: Report from Study
  Country: FR (occurrence: FR)
  Receive Date: 20130301
  Receipt Date: 20130301
  Transmission Date: 20140127
  Serious: Yes (Hospitalization)
  Sender: FDA-Public Use
  Company Number: FR-ROCHE-1195682

PATIENT
  Sex: Male
  Weight: 85 kg

DRUGS (5)
  1. MYCOPHENOLATE MOFETIL [Suspect]
     Indication: RENAL TRANSPLANT
     Route: 048
     Dates: start: 20120327
  2. PREDNISONE [Suspect]
     Indication: RENAL TRANSPLANT
     Route: 048
     Dates: start: 20120327
  3. EVEROLIMUS [Suspect]
     Indication: RENAL TRANSPLANT
     Route: 048
     Dates: start: 20120401
  4. LASILIX [Concomitant]
     Dosage: DRUG REPORTED AS LASILIX 250
     Route: 065
     Dates: start: 20120330
  5. HUMALOG MIX 50/50 [Concomitant]
     Route: 065
     Dates: start: 20120327

REACTIONS (1)
  - Complications of transplanted kidney [Recovered/Resolved]
